FAERS Safety Report 7571868-5 (Version None)
Quarter: 2011Q2

REPORT INFORMATION
  Report Type: 
  Country: None (occurrence: None)
  Receive Date: 20110624
  Receipt Date: 20100505
  Transmission Date: 20111010
  Serious: No
  Sender: FDA-Public Use
  Company Number: A0859417A

PATIENT
  Age: 25 Year
  Sex: Male
  Weight: 89 kg

DRUGS (2)
  1. ALLEGRA D 24 HOUR [Concomitant]
     Route: 048
     Dates: start: 20080518
  2. VERAMYST [Suspect]
     Route: 045
     Dates: start: 20080518, end: 20090901

REACTIONS (1)
  - NASAL DISORDER [None]
